FAERS Safety Report 9358214 (Version 1)
Quarter: 2013Q2

REPORT INFORMATION
  Report Type: Spontaneous
  Country: US (occurrence: None)
  Receive Date: 20130619
  Receipt Date: 20130619
  Transmission Date: 20140414
  Serious: Yes (Hospitalization, Other)
  Sender: FDA-Public Use
  Company Number: None

PATIENT
  Age: 78 Year
  Sex: Male
  Weight: 76.66 kg

DRUGS (2)
  1. ALIMTA [Suspect]
     Indication: LUNG NEOPLASM MALIGNANT
     Route: 042
     Dates: start: 20130520
  2. ALIMTA [Suspect]
     Indication: LUNG NEOPLASM MALIGNANT
     Route: 042
     Dates: start: 20130520, end: 20130520

REACTIONS (10)
  - Chills [None]
  - Nausea [None]
  - Hypotension [None]
  - Pyrexia [None]
  - Hypovolaemia [None]
  - Renal failure [None]
  - Pneumonia [None]
  - Anaphylactoid reaction [None]
  - Pancreatitis [None]
  - Septic shock [None]
